FAERS Safety Report 10233915 (Version 2)
Quarter: 2014Q2

REPORT INFORMATION
  Report Type: Spontaneous
  Country: JP (occurrence: JP)
  Receive Date: 20140612
  Receipt Date: 20140612
  Transmission Date: 20141212
  Serious: Yes (Other)
  Sender: FDA-Public Use
  Company Number: JP-BRISTOL-MYERS SQUIBB COMPANY-20604377

PATIENT
  Age: 69 Year
  Sex: Male

DRUGS (9)
  1. ERBITUX SOLN FOR INF 5MG/ML [Suspect]
     Indication: LARYNGEAL CANCER
     Dosage: 250 MG/M2: 17 TO 24 MAR 2014
     Route: 041
     Dates: start: 20140310
  2. PACLITAXEL [Concomitant]
     Indication: LARYNGEAL CANCER
     Route: 041
     Dates: start: 20140310
  3. CARBOPLATIN INJECTION [Concomitant]
     Indication: LARYNGEAL CANCER
     Dosage: 1 DF: 2.5 AUC
     Route: 041
     Dates: start: 20140310
  4. ADALAT [Concomitant]
     Indication: HYPERTENSION
     Route: 048
  5. AVAPRO [Concomitant]
     Indication: HYPERTENSION
     Route: 048
  6. ARTIST [Concomitant]
     Indication: HYPERTENSION
     Route: 048
  7. ITOROL [Concomitant]
     Route: 048
  8. HALFDIGOXIN [Concomitant]
     Dates: end: 20140321
  9. VALSARTAN [Concomitant]

REACTIONS (1)
  - Acute coronary syndrome [Recovered/Resolved]
